FAERS Safety Report 16668808 (Version 1)
Quarter: 2019Q3

REPORT INFORMATION
  Report Type: Spontaneous
  Country: US (occurrence: US)
  Receive Date: 20190805
  Receipt Date: 20190805
  Transmission Date: 20191004
  Serious: No
  Sender: FDA-Public Use
  Company Number: None

PATIENT
  Age: 85 Year
  Sex: Male
  Weight: 87.75 kg

DRUGS (1)
  1. CICLOPIROX. [Suspect]
     Active Substance: CICLOPIROX
     Indication: BODY TINEA
     Route: 061
     Dates: start: 20181201, end: 20190201

REACTIONS (1)
  - Prostatic specific antigen increased [None]

NARRATIVE: CASE EVENT DATE: 20190107
